FAERS Safety Report 7128093-1 (Version None)
Quarter: 2010Q4

REPORT INFORMATION
  Report Type: 
  Country: None (occurrence: None)
  Receive Date: 20101130
  Receipt Date: 20101117
  Transmission Date: 20110411
  Serious: Yes (Hospitalization, Other)
  Sender: FDA-Public Use
  Company Number: US-AMGEN-USASP2010003903

PATIENT

DRUGS (2)
  1. NPLATE [Suspect]
     Indication: IDIOPATHIC THROMBOCYTOPENIC PURPURA
     Dosage: 500 A?G, Q2WK
     Dates: start: 20100917
  2. CORTICOSTEROIDS [Concomitant]
     Dosage: UNK
     Dates: start: 20100914, end: 20100925

REACTIONS (10)
  - BLOOD PRESSURE INCREASED [None]
  - CAROTID ARTERY STENOSIS [None]
  - CEREBELLAR INFARCTION [None]
  - DYSARTHRIA [None]
  - EMBOLISM ARTERIAL [None]
  - HEMIPARESIS [None]
  - MITRAL VALVE CALCIFICATION [None]
  - OEDEMA PERIPHERAL [None]
  - THROMBOSIS [None]
  - VENTRICULAR HYPERTROPHY [None]
